FAERS Safety Report 6700679-5 (Version None)
Quarter: 2010Q2

REPORT INFORMATION
  Report Type: 
  Country: None (occurrence: None)
  Receive Date: 20100428
  Receipt Date: 20100426
  Transmission Date: 20101027
  Serious: Yes (Death, Hospitalization, Other)
  Sender: FDA-Public Use
  Company Number: PHHY2008CA01846

PATIENT
  Sex: Female

DRUGS (2)
  1. SANDOSTATIN LAR [Suspect]
     Indication: CARCINOID TUMOUR
     Dosage: 60 MG EVERY 3 WEEKS
     Route: 030
     Dates: start: 20020501, end: 20090114
  2. SANDOSTATIN LAR [Suspect]
     Indication: ACROMEGALY

REACTIONS (13)
  - ALOPECIA [None]
  - AMNESIA [None]
  - DEATH [None]
  - DIABETES MELLITUS [None]
  - HAEMATEMESIS [None]
  - HYPERTENSION [None]
  - LABILE BLOOD PRESSURE [None]
  - NAUSEA [None]
  - PNEUMONIA [None]
  - RASH [None]
  - SKIN DEPIGMENTATION [None]
  - VOMITING [None]
  - WEIGHT DECREASED [None]
